FAERS Safety Report 5125776-X (Version None)
Quarter: 2006Q4

REPORT INFORMATION
  Report Type: 
  Country: None (occurrence: None)
  Receive Date: 20061010
  Receipt Date: 20061010
  Transmission Date: 20070319
  Serious: Yes (Hospitalization)
  Sender: FDA-Public Use
  Company Number: None

PATIENT
  Sex: Female
  Weight: 98.8842 kg

DRUGS (15)
  1. TEMOZOLOMIDE [Suspect]
     Indication: METASTATIC MALIGNANT MELANOMA
     Dosage: 315 MG QD X 7, QO WK PO
     Route: 048
     Dates: start: 20060426, end: 20060502
  2. TEMOZOLOMIDE [Suspect]
     Indication: METASTATIC MALIGNANT MELANOMA
     Dosage: 315 MG QD X 7, QO WK PO
     Route: 048
     Dates: start: 20060510, end: 20060515
  3. . [Concomitant]
  4. . [Concomitant]
  5. SUNITINIB L-MALATE SALT [Suspect]
     Indication: METASTATIC MALIGNANT MELANOMA
     Dosage: 25 MG D 8-28, Q 28D PO
     Route: 048
     Dates: start: 20060503, end: 20060521
  6. SKELAX [Concomitant]
  7. DIOVAN [Concomitant]
  8. INDAPIMIDE [Concomitant]
  9. CLARINEX [Concomitant]
  10. MOBIC [Concomitant]
  11. NEXIUM [Concomitant]
  12. PEPCID [Concomitant]
  13. QUININE SULFATE [Concomitant]
  14. SEREVENT [Concomitant]
  15. AZMACORT [Concomitant]

REACTIONS (10)
  - COLITIS [None]
  - DEHYDRATION [None]
  - DIARRHOEA [None]
  - FEBRILE NEUTROPENIA [None]
  - MUCOSAL INFLAMMATION [None]
  - NAUSEA [None]
  - PANCYTOPENIA [None]
  - RENAL FAILURE ACUTE [None]
  - URINARY TRACT INFECTION [None]
  - VOMITING [None]
